FAERS Safety Report 5655654-9 (Version None)
Quarter: 2008Q1

REPORT INFORMATION
  Report Type: 
  Country: None (occurrence: None)
  Receive Date: 20080212
  Receipt Date: 20071011
  Transmission Date: 20080703
  Serious: Yes (Other)
  Sender: FDA-Public Use
  Company Number: MC200700665

PATIENT
  Age: 60 Year
  Sex: Male
  Weight: 138.3 kg

DRUGS (5)
  1. ANGIOMAX [Suspect]
     Indication: PERCUTANEOUS CORONARY INTERVENTION
     Dosage: 0.75 MG/KG, BOLUS, IV BOLUS; 1.75 MG/KG INTRAVENOUS
     Route: 040
     Dates: start: 20070929, end: 20070929
  2. ANGIOMAX [Suspect]
     Indication: PERCUTANEOUS CORONARY INTERVENTION
     Dosage: 0.75 MG/KG, BOLUS, IV BOLUS; 1.75 MG/KG INTRAVENOUS
     Route: 040
     Dates: start: 20070929
  3. ADENOSINE [Concomitant]
  4. PLAVIX [Concomitant]
  5. ASPIRIN [Concomitant]

REACTIONS (1)
  - CORONARY ARTERY THROMBOSIS [None]
